FAERS Safety Report 9727880 (Version 1)
Quarter: 2013Q4

REPORT INFORMATION
  Report Type: Spontaneous
  Country: US (occurrence: US)
  Receive Date: 20131204
  Receipt Date: 20131204
  Transmission Date: 20140711
  Serious: No
  Sender: FDA-Public Use
  Company Number: US-BIOGENIDEC-2007BI024013

PATIENT
  Sex: Male

DRUGS (2)
  1. AVONEX [Suspect]
     Indication: MULTIPLE SCLEROSIS
     Route: 030
     Dates: start: 20000502, end: 2003
  2. AVONEX [Suspect]
     Indication: MULTIPLE SCLEROSIS
     Route: 030
     Dates: start: 2003

REACTIONS (9)
  - Injection site swelling [Recovered/Resolved]
  - Injection site mass [Unknown]
  - Multiple sclerosis [Unknown]
  - Tension [Unknown]
  - Fear [Unknown]
  - Sensitivity to weather change [Unknown]
  - Anxiety [Unknown]
  - Fatigue [Unknown]
  - Injection site pain [Recovered/Resolved]
